FAERS Safety Report 8607372-2 (Version None)
Quarter: 2012Q3

REPORT INFORMATION
  Report Type: 
  Country: None (occurrence: None)
  Receive Date: 20120821
  Receipt Date: 20120815
  Transmission Date: 20120928
  Serious: No
  Sender: FDA-Public Use
  Company Number: US-PFIZER INC-2012200616

PATIENT
  Age: 61 Year
  Sex: Male
  Weight: 83.447 kg

DRUGS (2)
  1. VFEND [Suspect]
     Indication: BRONCHOPULMONARY ASPERGILLOSIS
     Dosage: 200 MG, 2X/DAY
     Dates: end: 20120727
  2. VFEND [Suspect]
     Indication: MYCOBACTERIUM AVIUM COMPLEX INFECTION

REACTIONS (1)
  - LIVER FUNCTION TEST ABNORMAL [None]
